FAERS Safety Report 4747896-1 (Version None)
Quarter: 2005Q3

REPORT INFORMATION
  Report Type: 
  Country: None (occurrence: None)
  Receive Date: 20050817
  Receipt Date: 20050817
  Transmission Date: 20060218
  Serious: Yes (Other)
  Sender: FDA-Public Use
  Company Number: None

PATIENT
  Age: 55 Year
  Sex: Female

DRUGS (5)
  1. ENBREL [Suspect]
     Indication: PSORIATIC ARTHROPATHY
     Dosage: 50 MG WEEKLY SUBCUTANEOUS
     Route: 058
     Dates: start: 20050107, end: 20050816
  2. METHOTREXATE [Concomitant]
  3. NAPROXEN [Concomitant]
  4. FOSAMAX [Concomitant]
  5. SYNTHROID [Concomitant]

REACTIONS (1)
  - LEUKOPENIA [None]
